FAERS Safety Report 9769429 (Version 2)
Quarter: 2013Q4

REPORT INFORMATION
  Report Type: Spontaneous
  Country: SE (occurrence: SE)
  Receive Date: 20131218
  Receipt Date: 20131218
  Transmission Date: 20140711
  Serious: Yes (Other)
  Sender: FDA-Public Use
  Company Number: PHHY2013SE125098

PATIENT
  Age: 74 Year
  Sex: Female

DRUGS (8)
  1. TASIGNA [Suspect]
     Indication: CHRONIC MYELOID LEUKAEMIA
     Dosage: 200 MG, BID
     Route: 048
     Dates: start: 20131011
  2. TROMBYL [Concomitant]
     Indication: MYOCARDIAL INFARCTION
     Dates: start: 200509
  3. BEHEPAN [Concomitant]
     Indication: CHRONIC MYELOID LEUKAEMIA
     Dates: start: 2009
  4. ASA [Concomitant]
     Dosage: UNK
     Route: 048
  5. SIMVASTATIN [Concomitant]
     Route: 048
  6. FUROSEMIDE [Concomitant]
     Dosage: AS NEEDED
  7. VITAMIN B12 [Concomitant]
     Indication: VITAMIN B12 DEFICIENCY
  8. LERGIGAN MITE [Concomitant]

REACTIONS (2)
  - Dry mouth [Not Recovered/Not Resolved]
  - Nausea [Not Recovered/Not Resolved]
